FAERS Safety Report 14037271 (Version 2)
Quarter: 2017Q4

REPORT INFORMATION
  Report Type: Spontaneous
  Country: TW (occurrence: TW)
  Receive Date: 20171004
  Receipt Date: 20171018
  Transmission Date: 20180321
  Serious: Yes (Hospitalization)
  Sender: FDA-Public Use
  Company Number: TW-ACTELION-A-CH2017-160018

PATIENT
  Age: 67 Year
  Sex: Male

DRUGS (6)
  1. TRACLEER [Suspect]
     Active Substance: BOSENTAN
     Indication: PULMONARY ARTERIAL HYPERTENSION
     Dosage: UNK
     Route: 048
     Dates: start: 201605
  2. VYTORIN [Concomitant]
     Active Substance: EZETIMIBE\SIMVASTATIN
     Dosage: 30 MG, BID
     Route: 048
  3. XANTHIUM (THEOPHYLLINE) [Concomitant]
     Active Substance: THEOPHYLLINE
     Dosage: 200 MG, BID
     Route: 048
  4. CARTIL [Concomitant]
     Dosage: 30 MG, BID
     Route: 048
  5. NATRILIX [Concomitant]
     Active Substance: INDAPAMIDE
     Dosage: 0.75 MG, QD
     Route: 048
  6. NEUQUINON [Concomitant]
     Active Substance: UBIDECARENONE
     Dosage: 10 MG, TID
     Route: 048

REACTIONS (2)
  - Pericardial effusion [Recovering/Resolving]
  - Arrhythmia [Recovering/Resolving]

NARRATIVE: CASE EVENT DATE: 20170921
